FAERS Safety Report 7046570-9 (Version None)
Quarter: 2010Q4

REPORT INFORMATION
  Report Type: 
  Country: None (occurrence: None)
  Receive Date: 20101015
  Receipt Date: 20101006
  Transmission Date: 20110411
  Serious: Yes (Hospitalization)
  Sender: FDA-Public Use
  Company Number: US-BIOGENIDEC-2010BI034901

PATIENT
  Sex: Female

DRUGS (2)
  1. AVONEX [Suspect]
     Indication: MULTIPLE SCLEROSIS
     Route: 030
     Dates: start: 20030205, end: 20061231
  2. AVONEX [Suspect]
     Route: 030
     Dates: start: 20070808

REACTIONS (2)
  - CHEST DISCOMFORT [None]
  - GALLBLADDER OPERATION [None]
